FAERS Safety Report 4334612-0 (Version None)
Quarter: 2004Q1

REPORT INFORMATION
  Report Type: 
  Country: None (occurrence: None)
  Receive Date: 20040329
  Receipt Date: 20031230
  Transmission Date: 20041129
  Serious: No
  Sender: FDA-Public Use
  Company Number: 03P-163-0246004-00

PATIENT
  Age: 49 Year
  Sex: Female
  Weight: 51.2565 kg

DRUGS (9)
  1. HUMIRA [Suspect]
     Indication: RHEUMATOID ARTHRITIS
     Dosage: 40 MG, 1 IN 2 WK, SUBCUTANEOUS
     Route: 058
     Dates: start: 20031101
  2. LEFLUNOMIDE [Concomitant]
  3. PREDNISONE [Concomitant]
  4. FLUOXETINE HCL [Concomitant]
  5. PANTOPRAZOLE [Concomitant]
  6. MELOXICAM [Concomitant]
  7. PROPACET 100 [Concomitant]
  8. ZOLPIDEM TARTRATE [Concomitant]
  9. ACETAMINOPHEN [Concomitant]

REACTIONS (2)
  - ABDOMINAL DISTENSION [None]
  - WEIGHT INCREASED [None]
